FAERS Safety Report 6842917-4 (Version None)
Quarter: 2010Q3

REPORT INFORMATION
  Report Type: 
  Country: None (occurrence: None)
  Receive Date: 20100714
  Receipt Date: 20070808
  Transmission Date: 20110219
  Serious: No
  Sender: FDA-Public Use
  Company Number: US-PFIZER INC-2007066762

PATIENT
  Sex: Female
  Weight: 65.9 kg

DRUGS (4)
  1. CHANTIX [Suspect]
     Indication: SMOKING CESSATION THERAPY
     Dates: start: 20070701
  2. MONTELUKAST SODIUM [Concomitant]
  3. DETROL LA [Concomitant]
  4. VIVELLE-DOT [Concomitant]
     Indication: BLOOD OESTROGEN
     Route: 061

REACTIONS (1)
  - INSOMNIA [None]
